FAERS Safety Report 7033509-5 (Version None)
Quarter: 2010Q4

REPORT INFORMATION
  Report Type: 
  Country: None (occurrence: None)
  Receive Date: 20101007
  Receipt Date: 20100929
  Transmission Date: 20110411
  Serious: Yes (Other)
  Sender: FDA-Public Use
  Company Number: US-ROXANE LABORATORIES, INC.-2010-RO-01285RO

PATIENT
  Age: 67 Year
  Sex: Male

DRUGS (6)
  1. PREDNISONE [Suspect]
     Indication: STEM CELL TRANSPLANT
     Dosage: 80 MG
  2. PREDNISONE [Suspect]
     Dosage: 5 MG
  3. MYCOPHENOLATE MOFETIL [Suspect]
     Indication: STEM CELL TRANSPLANT
     Dosage: 2000 MG
  4. MYCOPHENOLATE MOFETIL [Suspect]
     Dosage: 1000 MG
  5. TACROLIMUS [Suspect]
     Indication: STEM CELL TRANSPLANT
     Dosage: 1.5 MG
  6. TACROLIMUS [Suspect]
     Dosage: 0.5 MG

REACTIONS (2)
  - NEUTROPHIL PELGER-HUET ANOMALY PRESENT [None]
  - PANCYTOPENIA [None]
